FAERS Safety Report 8324879-6 (Version None)
Quarter: 2012Q2

REPORT INFORMATION
  Report Type: 
  Country: None (occurrence: None)
  Receive Date: 20120501
  Receipt Date: 20120425
  Transmission Date: 20120825
  Serious: Yes (Other)
  Sender: FDA-Public Use
  Company Number: CA-PFIZER INC-2012010771

PATIENT
  Age: 60 Year
  Sex: Male

DRUGS (4)
  1. VARENICLINE TARTRATE [Suspect]
     Indication: SMOKING CESSATION THERAPY
     Dosage: UNK, TOOK AS PRESCRIBED
     Route: 048
     Dates: start: 20110101, end: 20110101
  2. CLONAZEPAM [Concomitant]
     Indication: INSOMNIA
     Dosage: UNK
  3. TAMSULOSIN HYDROCHLORIDE [Concomitant]
     Dosage: UNK
  4. ATARAX [Concomitant]
     Dosage: UNK

REACTIONS (9)
  - THROMBOSIS [None]
  - NIGHTMARE [None]
  - CONFUSIONAL STATE [None]
  - ILLUSION [None]
  - FACE INJURY [None]
  - DIZZINESS [None]
  - HALLUCINATION, AUDITORY [None]
  - HALLUCINATION, VISUAL [None]
  - HAEMORRHAGE [None]
